FAERS Safety Report 10958013 (Version 2)
Quarter: 2017Q1

REPORT INFORMATION
  Report Type: Spontaneous
  Country: US (occurrence: US)
  Receive Date: 20150326
  Receipt Date: 20170328
  Transmission Date: 20170428
  Serious: Yes (Other)
  Sender: FDA-Public Use
  Company Number: US-ELI_LILLY_AND_COMPANY-US201503006630

PATIENT
  Sex: Female

DRUGS (4)
  1. CYMBALTA [Suspect]
     Active Substance: DULOXETINE HYDROCHLORIDE
     Indication: DEPRESSION
     Dosage: 20 MG, QD
     Route: 048
     Dates: start: 200801
  2. CYMBALTA [Suspect]
     Active Substance: DULOXETINE HYDROCHLORIDE
     Dosage: 60 MG, QD
     Route: 048
     Dates: start: 20140728, end: 20141106
  3. CYMBALTA [Suspect]
     Active Substance: DULOXETINE HYDROCHLORIDE
     Indication: PAIN
     Dosage: 60 MG, QD
     Route: 048
     Dates: start: 20080519, end: 20120622
  4. CYMBALTA [Suspect]
     Active Substance: DULOXETINE HYDROCHLORIDE
     Dosage: 60 MG, QD
     Route: 048
     Dates: start: 20160114

REACTIONS (12)
  - Nausea [Unknown]
  - Dizziness [Unknown]
  - Confusional state [Unknown]
  - Mood swings [Unknown]
  - Paraesthesia [Unknown]
  - Insomnia [Unknown]
  - Seizure [Unknown]
  - Irritability [Unknown]
  - Nightmare [Unknown]
  - Withdrawal syndrome [Unknown]
  - Anxiety [Unknown]
  - Sensory disturbance [Unknown]
